FAERS Safety Report 4943890-6 (Version None)
Quarter: 2006Q1

REPORT INFORMATION
  Report Type: 
  Country: None (occurrence: None)
  Receive Date: 20060310
  Receipt Date: 20060227
  Transmission Date: 20060701
  Serious: Yes (Hospitalization, Other)
  Sender: FDA-Public Use
  Company Number: 2006028769

PATIENT
  Age: 58 Year
  Sex: Male
  Weight: 102.0593 kg

DRUGS (4)
  1. LIPITOR [Suspect]
     Indication: BLOOD CHOLESTEROL
     Dosage: 10 MG (10 MG, 1 IN 1 D), ORAL
     Route: 048
     Dates: start: 19990101
  2. PLAVIX [Concomitant]
  3. ATENOLOL [Concomitant]
  4. CLONIDINE [Concomitant]

REACTIONS (2)
  - BALANCE DISORDER [None]
  - CEREBROVASCULAR ACCIDENT [None]
